FAERS Safety Report 21329158 (Version 3)
Quarter: 2022Q3

REPORT INFORMATION
  Report Type: Spontaneous
  Country: US (occurrence: US)
  Receive Date: 20220913
  Receipt Date: 20220921
  Transmission Date: 20221027
  Serious: Yes (Other)
  Sender: FDA-Public Use
  Company Number: US-TAKEDA-2022TUS011045

PATIENT
  Age: 67 Year
  Sex: Female

DRUGS (19)
  1. PREVACID [Suspect]
     Active Substance: LANSOPRAZOLE
     Indication: Gastrooesophageal reflux disease
     Dosage: 40 MG, 1X/DAY
     Dates: start: 2010, end: 2018
  2. LANSOPRAZOLE [Suspect]
     Active Substance: LANSOPRAZOLE
     Indication: Gastrooesophageal reflux disease
     Dosage: 30 MG, 1X/DAY
     Dates: start: 2011
  3. PROTONIX [Suspect]
     Active Substance: PANTOPRAZOLE SODIUM
     Indication: Gastrooesophageal reflux disease
     Dosage: 40 MG, 2X/DAY
     Dates: start: 202204
  4. DEXILANT [Suspect]
     Active Substance: DEXLANSOPRAZOLE
     Indication: Gastrooesophageal reflux disease
     Dosage: 60 MG, 1X/DAY
     Dates: start: 2010, end: 2018
  5. NEXIUM [Suspect]
     Active Substance: ESOMEPRAZOLE MAGNESIUM
     Indication: Gastrooesophageal reflux disease
     Dosage: 40 MG, 1X/DAY
     Dates: start: 2010, end: 2018
  6. NEXIUM 24HR [Suspect]
     Active Substance: ESOMEPRAZOLE MAGNESIUM
     Indication: Gastrooesophageal reflux disease
     Dosage: UNK, AS NEEDED
     Dates: start: 2014, end: 2018
  7. PRILOSEC [Suspect]
     Active Substance: OMEPRAZOLE MAGNESIUM
     Indication: Gastrooesophageal reflux disease
     Dosage: 40 MG, 1X/DAY
     Dates: start: 2010, end: 2018
  8. PRAVASTATIN [Concomitant]
     Active Substance: PRAVASTATIN
     Indication: Blood cholesterol abnormal
     Dosage: UNK
     Dates: start: 2014, end: 2017
  9. CLOPIDOGREL [Concomitant]
     Active Substance: CLOPIDOGREL BISULFATE
     Indication: Cardiac disorder
     Dosage: UNK
     Dates: start: 2013, end: 2014
  10. AZITHROMYCIN [Concomitant]
     Active Substance: AZITHROMYCIN
     Indication: Infection
     Dosage: UNK
     Dates: start: 2014
  11. AZITHROMYCIN [Concomitant]
     Active Substance: AZITHROMYCIN
     Dosage: UNK
     Dates: start: 2019
  12. LISINOPRIL [Concomitant]
     Active Substance: LISINOPRIL
     Indication: Blood pressure abnormal
     Dosage: UNK
     Dates: start: 2014, end: 2017
  13. CIPROFLOXACIN [Concomitant]
     Active Substance: CIPROFLOXACIN
     Indication: Infection
     Dosage: UNK
     Dates: start: 2014, end: 2017
  14. ASPIRIN [Concomitant]
     Active Substance: ASPIRIN
     Indication: Pain
     Dosage: UNK, AS NEEDED
  15. RANITIDINE [Concomitant]
     Active Substance: RANITIDINE
     Dosage: UNK
  16. CALCIUM CARBONATE\MAGNESIUM CARBONATE\MAGNESIUM TRISILICATE [Concomitant]
     Active Substance: CALCIUM CARBONATE\MAGNESIUM CARBONATE\MAGNESIUM TRISILICATE
     Indication: Antacid therapy
     Dosage: UNK, AS NEEDED
  17. DIHYDROXYALUMINUM SODIUM CARBONATE [Concomitant]
     Active Substance: DIHYDROXYALUMINUM SODIUM CARBONATE
     Indication: Antacid therapy
     Dosage: UNK, AS NEEDED
  18. PEPTO-BISMOL [Concomitant]
     Active Substance: BISMUTH SUBSALICYLATE
     Indication: Antacid therapy
     Dosage: UNK, AS NEEDED
  19. ALUMINUM HYDROXIDE\MAGNESIUM HYDROXIDE [Concomitant]
     Active Substance: ALUMINUM HYDROXIDE\MAGNESIUM HYDROXIDE
     Indication: Antacid therapy
     Dosage: UNK, AS NEEDED

REACTIONS (3)
  - Chronic kidney disease [Not Recovered/Not Resolved]
  - Gastrooesophageal reflux disease [Not Recovered/Not Resolved]
  - Depression [Not Recovered/Not Resolved]

NARRATIVE: CASE EVENT DATE: 20170101
